FAERS Safety Report 4843998-X (Version None)
Quarter: 2005Q4

REPORT INFORMATION
  Report Type: 
  Country: None (occurrence: None)
  Receive Date: 20051202
  Receipt Date: 20050609
  Transmission Date: 20060501
  Serious: No
  Sender: FDA-Public Use
  Company Number: US-GLAXOSMITHKLINE-A0562020A

PATIENT
  Age: 37 Year
  Sex: Female

DRUGS (3)
  1. AUGMENTIN XR [Suspect]
     Indication: SINUSITIS
     Route: 048
  2. ALLEGRA [Concomitant]
  3. METHOTREXATE [Concomitant]

REACTIONS (1)
  - ARTHRITIS [None]
